FAERS Safety Report 9423493 (Version 2)
Quarter: 2013Q3

REPORT INFORMATION
  Report Type: Spontaneous
  Country: US (occurrence: US)
  Receive Date: 20130726
  Receipt Date: 20130905
  Transmission Date: 20140515
  Serious: Yes (Other)
  Sender: FDA-Public Use
  Company Number: US-ASTRAZENECA-2013SE54866

PATIENT
  Age: 1062 Month
  Sex: Male
  Weight: 68 kg

DRUGS (11)
  1. SYMBICORT PMDI [Suspect]
     Indication: CHRONIC OBSTRUCTIVE PULMONARY DISEASE
     Dosage: 160/4.5 MCG 2 PUFFS BID
     Route: 055
     Dates: start: 201206
  2. DIOVAN HCT [Concomitant]
     Indication: HYPERTENSION
     Dosage: 40  6.25 MG DAILY
     Route: 048
  3. IMMODIUM [Concomitant]
     Indication: FAECAL INCONTINENCE
     Route: 048
  4. METIPRANOLOL [Concomitant]
     Indication: GLAUCOMA
     Dosage: 1 GTT OU BID
     Route: 050
  5. FLUTICASONE [Concomitant]
     Indication: LUNG DISORDER
     Dosage: 2 PUFFS BID
     Route: 045
  6. ASPIRIN [Concomitant]
     Route: 048
  7. ALLEGRA [Concomitant]
     Indication: HYPERSENSITIVITY
     Route: 048
  8. CITRACAL AND D3 [Concomitant]
     Route: 048
  9. VITAMIN D3 [Concomitant]
     Route: 048
  10. CENTRUM SILVER [Concomitant]
     Dosage: 1 DAILY
     Route: 045
  11. ADVAIR [Concomitant]

REACTIONS (4)
  - Small cell lung cancer [Unknown]
  - Malaise [Unknown]
  - Hearing impaired [Unknown]
  - Drug dose omission [Unknown]
